FAERS Safety Report 5095846-3 (Version None)
Quarter: 2006Q3

REPORT INFORMATION
  Report Type: 
  Country: None (occurrence: None)
  Receive Date: 20060905
  Receipt Date: 20060829
  Transmission Date: 20061208
  Serious: Yes (Other)
  Sender: FDA-Public Use
  Company Number: US-BAYER-200613670BCC

PATIENT
  Age: 50 Year
  Sex: Female

DRUGS (3)
  1. PHILLIPS MILK OF MAGNESIA TABLETS [Suspect]
     Indication: DRUG USE FOR UNKNOWN INDICATION
     Dosage: TOTAL DAILY DOSE: 7 ML
     Route: 048
     Dates: start: 20060827
  2. PHILLIPS MILK OF MAGNESIA TABLETS [Suspect]
     Dosage: TOTAL DAILY DOSE: 311 MG  UNIT DOSE: 311 MG
     Route: 048
     Dates: start: 20060501
  3. PHILLIPS MILK OF MAGNESIA TABLETS [Suspect]
     Dosage: TOTAL DAILY DOSE: 311 MG  UNIT DOSE: 311 MG
     Route: 048
     Dates: start: 20060827

REACTIONS (4)
  - DIARRHOEA [None]
  - DIZZINESS [None]
  - FACE OEDEMA [None]
  - PALPITATIONS [None]
